FAERS Safety Report 8171462-1 (Version None)
Quarter: 2012Q1

REPORT INFORMATION
  Report Type: 
  Country: None (occurrence: None)
  Receive Date: 20120228
  Receipt Date: 20120221
  Transmission Date: 20120608
  Serious: Yes (Death, Hospitalization)
  Sender: FDA-Public Use
  Company Number: ES-CELGENEUS-144-21880-12022334

PATIENT
  Sex: Female

DRUGS (6)
  1. REVLIMID [Suspect]
     Dosage: 25 MILLIGRAM
     Route: 048
     Dates: start: 20110621, end: 20110710
  2. REVLIMID [Suspect]
     Indication: MULTIPLE MYELOMA
     Dosage: 25 MILLIGRAM
     Route: 048
     Dates: start: 20110524
  3. DEXAMETHASONE [Suspect]
     Indication: MULTIPLE MYELOMA
     Route: 048
     Dates: start: 20110524, end: 20110620
  4. LMWH [Concomitant]
     Indication: PROPHYLAXIS
     Route: 065
  5. LMWH [Concomitant]
     Indication: ANTICOAGULANT THERAPY
  6. DEXAMETHASONE [Suspect]
     Route: 048
     Dates: start: 20110621, end: 20110711

REACTIONS (1)
  - SEPTIC SHOCK [None]
